FAERS Safety Report 4536872-X (Version None)
Quarter: 2004Q4

REPORT INFORMATION
  Report Type: 
  Country: None (occurrence: None)
  Receive Date: 20041223
  Receipt Date: 20041123
  Transmission Date: 20050328
  Serious: Yes (Life-Threatening)
  Sender: FDA-Public Use
  Company Number: BE-GLAXOSMITHKLINE-B0358881A

PATIENT
  Age: 44 Year
  Sex: Male
  Weight: 86 kg

DRUGS (1)
  1. SERETIDE [Suspect]
     Indication: ASTHMA EXERCISE INDUCED
     Route: 065
     Dates: start: 20031001, end: 20040405

REACTIONS (3)
  - IMMUNOSUPPRESSION [None]
  - LYMPHOPENIA [None]
  - ONYCHOMYCOSIS [None]
